FAERS Safety Report 23011616 (Version 3)
Quarter: 2023Q4

REPORT INFORMATION
  Report Type: Spontaneous
  Country: US (occurrence: US)
  Receive Date: 20230929
  Receipt Date: 20231115
  Transmission Date: 20240109
  Serious: No
  Sender: FDA-Public Use
  Company Number: US-Calliditas-2023CAL01266

PATIENT
  Age: 44 Year
  Sex: Female

DRUGS (1)
  1. TARPEYO [Suspect]
     Active Substance: BUDESONIDE
     Indication: Selective IgA immunodeficiency
     Dosage: 16MG (4MG CAPSULES) ONCE DAILY
     Route: 048
     Dates: start: 20230907

REACTIONS (6)
  - Blood pressure increased [Unknown]
  - Hypomenorrhoea [Unknown]
  - Anxiety [Unknown]
  - Swelling [Unknown]
  - Menstruation delayed [Unknown]
  - Blood iron decreased [Unknown]
